FAERS Safety Report 7783773-X (Version None)
Quarter: 2011Q3

REPORT INFORMATION
  Report Type: 
  Country: None (occurrence: None)
  Receive Date: 20110928
  Receipt Date: 20110526
  Transmission Date: 20111222
  Serious: No
  Sender: FDA-Public Use
  Company Number: US-BAYER-2011-047173

PATIENT
  Sex: Male
  Weight: 62 kg

DRUGS (3)
  1. ACETYLSALICYLIC ACID SRT [Concomitant]
  2. PRINIVIL [Concomitant]
  3. ALEVE (CAPLET) [Suspect]
     Indication: ARTHRITIS
     Dosage: 2 U, BID
     Route: 048

REACTIONS (1)
  - NO ADVERSE EVENT [None]
